FAERS Safety Report 4922801-3 (Version None)
Quarter: 2006Q1

REPORT INFORMATION
  Report Type: 
  Country: None (occurrence: None)
  Receive Date: 20060221
  Receipt Date: 20060213
  Transmission Date: 20060701
  Serious: Yes (Hospitalization)
  Sender: FDA-Public Use
  Company Number: DEWYE386813FEB06

PATIENT
  Age: 48 Year
  Sex: Male

DRUGS (3)
  1. VENLAFAXINE HCL [Suspect]
     Dosage: UNKNOWN OVERDOSE AMOUNT, ORAL
     Route: 048
     Dates: start: 20060210, end: 20060210
  2. ALCOHOL (ETHANOL, ) [Suspect]
     Dosage: UNKNOWN OVERDOSE AMOUNT, ORAL
     Route: 048
     Dates: start: 20060210, end: 20060210
  3. MELPERONE (MELPERONE, ) [Suspect]
     Dosage: AT LEAST 10 TABLETS (OVERDOSE AMOUNT AT LEAST 1000 MG)
     Route: 048
     Dates: start: 20060210, end: 20060210

REACTIONS (11)
  - AGITATION [None]
  - ALCOHOL USE [None]
  - DELIRIUM [None]
  - DYSARTHRIA [None]
  - HAEMATEMESIS [None]
  - HALLUCINATION [None]
  - HYPOTHERMIA [None]
  - MULTIPLE DRUG OVERDOSE INTENTIONAL [None]
  - NAUSEA [None]
  - SOPOR [None]
  - SUICIDE ATTEMPT [None]
